FAERS Safety Report 9341598 (Version 1)
Quarter: 2013Q2

REPORT INFORMATION
  Report Type: Spontaneous
  Country: US (occurrence: US)
  Receive Date: 20130611
  Receipt Date: 20130611
  Transmission Date: 20140414
  Serious: Yes (Hospitalization)
  Sender: FDA-Public Use
  Company Number: PHEH2013US009229

PATIENT
  Age: 50 Year
  Sex: Female

DRUGS (7)
  1. CLOZARIL [Suspect]
     Dosage: 325 MG, BID
     Route: 048
  2. CITALOPRAM [Concomitant]
     Dosage: 20 MG
     Route: 048
  3. CLONAZEPAM [Concomitant]
     Dosage: 0.5 MG, BID
     Route: 048
  4. DEPAKOTE [Concomitant]
     Dosage: 250 MG, UNK
     Route: 048
  5. LITHIUM [Concomitant]
     Dosage: 300 MG, UNK
     Route: 048
  6. THYROXINE [Concomitant]
     Dosage: 50 UG, UNK
     Route: 048
  7. QUETIAPINE [Concomitant]
     Dosage: 200 MG, UNK
     Route: 048

REACTIONS (5)
  - Fall [Unknown]
  - Tibia fracture [Unknown]
  - Fibula fracture [Unknown]
  - White blood cell count increased [Recovered/Resolved]
  - Neutrophil count increased [Unknown]
